FAERS Safety Report 5103791-X (Version None)
Quarter: 2006Q3

REPORT INFORMATION
  Report Type: 
  Country: None (occurrence: None)
  Receive Date: 20060911
  Receipt Date: 20060831
  Transmission Date: 20061208
  Serious: Yes (Death)
  Sender: FDA-Public Use
  Company Number: 2006105310

PATIENT
  Age: 43 Year
  Sex: Female

DRUGS (5)
  1. ZIPRASIDONE (CPAS) (ZIPRASIDONE) [Suspect]
     Indication: PSYCHOTIC DISORDER
     Dosage: 240 MG (80 MG, 3 IN 1 D), ORAL
     Route: 048
     Dates: start: 20060731, end: 20060824
  2. CLONAZEPAM [Concomitant]
  3. LEVOMEPROMAZINE (LEVOMEPROMAZINE) [Concomitant]
  4. VALPROATE SODIUM [Concomitant]
  5. DIAZEPAM [Concomitant]

REACTIONS (3)
  - ABNORMAL BEHAVIOUR [None]
  - PULMONARY EMBOLISM [None]
  - SUDDEN DEATH [None]
